FAERS Safety Report 10021508 (Version 1)
Quarter: 2014Q1

REPORT INFORMATION
  Report Type: Spontaneous
  Country: US (occurrence: US)
  Receive Date: 20140319
  Receipt Date: 20140319
  Transmission Date: 20141002
  Serious: No
  Sender: FDA-Public Use
  Company Number: US-B.I. PHARMACEUTICALS,INC./RIDGEFIELD-2014-BI-10649BP

PATIENT
  Age: 83 Year
  Sex: Male
  Weight: 89 kg

DRUGS (5)
  1. COMBIVENT [Suspect]
     Indication: NASAL CONGESTION
     Dosage: STRENGTH: 20 MCG / 100 MCG;
     Route: 055
     Dates: start: 201312
  2. WARFARIN [Concomitant]
     Indication: ARTIFICIAL HEART IMPLANT
     Dosage: 4.5 MG
     Route: 048
  3. WARFARIN [Concomitant]
     Dosage: 5 MG
     Route: 048
  4. DILTIAZEM [Concomitant]
     Indication: HYPERTENSION
     Dosage: 180 MG
     Route: 048
  5. SYMBICORT [Concomitant]
     Indication: NASAL CONGESTION
     Dosage: 2 PUF
     Route: 055

REACTIONS (2)
  - Dysphonia [Not Recovered/Not Resolved]
  - Off label use [Unknown]
